FAERS Safety Report 23354791 (Version 1)
Quarter: 2024Q1

REPORT INFORMATION
  Report Type: Report from Study
  Country: US (occurrence: None)
  Receive Date: 20240101
  Receipt Date: 20240101
  Transmission Date: 20240410
  Serious: Yes (Other)
  Sender: FDA-Public Use
  Company Number: 2023A291405

PATIENT
  Age: 29342 Day
  Sex: Female
  Weight: 56.9 kg

DRUGS (1)
  1. TAGRISSO [Suspect]
     Active Substance: OSIMERTINIB
     Route: 048
     Dates: start: 20190516

REACTIONS (11)
  - Headache [Unknown]
  - Disease progression [Unknown]
  - Hiatus hernia [Unknown]
  - Eating disorder [Unknown]
  - Constipation [Unknown]
  - Dizziness [Unknown]
  - Reflux gastritis [Unknown]
  - Anaemia [Unknown]
  - Decreased appetite [Unknown]
  - Stomatitis [Unknown]
  - Intentional product misuse [Unknown]

NARRATIVE: CASE EVENT DATE: 20231214
